FAERS Safety Report 26142471 (Version 1)
Quarter: 2025Q4

REPORT INFORMATION
  Report Type: Spontaneous
  Country: EU (occurrence: EU)
  Receive Date: 20251210
  Receipt Date: 20251210
  Transmission Date: 20260118
  Serious: Yes (Life-Threatening, Other)
  Sender: AMGEN
  Company Number: EU-AMGEN-ESPSP2025240687

PATIENT

DRUGS (1)
  1. BEVACIZUMAB [Suspect]
     Active Substance: BEVACIZUMAB
     Indication: Hereditary haemorrhagic telangiectasia
     Dosage: UNK
     Route: 065

REACTIONS (9)
  - Endocarditis staphylococcal [Unknown]
  - Pneumonia staphylococcal [Unknown]
  - Septic arthritis staphylococcal [Unknown]
  - Intervertebral discitis [Unknown]
  - Liver abscess [Unknown]
  - Renal abscess [Unknown]
  - Staphylococcal infection [Unknown]
  - Staphylococcal abscess [Unknown]
  - Off label use [Unknown]
